FAERS Safety Report 5445677-7 (Version None)
Quarter: 2007Q3

REPORT INFORMATION
  Report Type: 
  Country: None (occurrence: None)
  Receive Date: 20070904
  Receipt Date: 20070824
  Transmission Date: 20080115
  Serious: Yes (Other)
  Sender: FDA-Public Use
  Company Number: CHPA2007US09133

PATIENT
  Age: 4 Week
  Sex: Female

DRUGS (2)
  1. GAS-X (NCH)(SIMETHICONE) DROPS [Suspect]
     Indication: FLATULENCE
     Dosage: 0.3 ML, ONCE/SINGLE EARLY EVENING, ORAL, 0.3 ML, ONCE/SINGLE AT 09:30P.M., ORAL
     Route: 048
     Dates: start: 20070822, end: 20070822
  2. GAS-X (NCH)(SIMETHICONE) DROPS [Suspect]
     Indication: FLATULENCE
     Dosage: 0.3 ML, ONCE/SINGLE EARLY EVENING, ORAL, 0.3 ML, ONCE/SINGLE AT 09:30P.M., ORAL
     Route: 048
     Dates: start: 20070822

REACTIONS (1)
  - RASH GENERALISED [None]
